FAERS Safety Report 19019611 (Version 2)
Quarter: 2021Q1

REPORT INFORMATION
  Report Type: Spontaneous
  Country: DE (occurrence: DE)
  Receive Date: 20210316
  Receipt Date: 20210331
  Transmission Date: 20210420
  Serious: Yes (Death)
  Sender: FDA-Public Use
  Company Number: DE-BAXTER-2021BAX004470

PATIENT
  Age: 59 Year
  Sex: Male
  Weight: 86 kg

DRUGS (5)
  1. ENDOXAN 1G [Suspect]
     Active Substance: CYCLOPHOSPHAMIDE
     Indication: CHEMOTHERAPY
     Route: 042
     Dates: start: 20201101, end: 20201102
  2. AMSACRINE [Concomitant]
     Active Substance: AMSACRINE
     Indication: CHEMOTHERAPY
     Route: 042
     Dates: start: 20201018, end: 20201019
  3. TREOSULFAN [Concomitant]
     Active Substance: TREOSULFAN
     Indication: CHEMOTHERAPY
     Route: 042
     Dates: start: 20201025, end: 20201027
  4. FLUDARABINE [Concomitant]
     Active Substance: FLUDARABINE PHOSPHATE
     Indication: CHEMOTHERAPY
     Route: 042
     Dates: start: 20201018, end: 20201027
  5. CYTARABINE. [Concomitant]
     Active Substance: CYTARABINE
     Indication: CHEMOTHERAPY
     Route: 042
     Dates: start: 20201018, end: 20201019

REACTIONS (4)
  - Dyspnoea [Fatal]
  - Arrhythmia [Fatal]
  - Death [Fatal]
  - Hypervolaemia [Fatal]

NARRATIVE: CASE EVENT DATE: 2020
